FAERS Safety Report 4580397-2 (Version None)
Quarter: 2005Q1

REPORT INFORMATION
  Report Type: 
  Country: None (occurrence: None)
  Receive Date: 20050214
  Receipt Date: 20040114
  Transmission Date: 20050727
  Serious: No
  Sender: FDA-Public Use
  Company Number: US-GLAXOSMITHKLINE-A0493258A

PATIENT
  Age: 53 Year
  Sex: Female
  Weight: 63 kg

DRUGS (6)
  1. LAMICTAL [Suspect]
     Indication: BIPOLAR DISORDER
     Dosage: 75MG PER DAY
     Route: 048
     Dates: start: 20031222, end: 20040112
  2. ZYPREXA [Concomitant]
     Route: 048
  3. PROZAC [Concomitant]
     Route: 048
  4. AMBIEN [Concomitant]
     Route: 048
  5. EFFEXOR [Concomitant]
     Route: 048
  6. LORAZEPAM [Concomitant]
     Route: 048

REACTIONS (1)
  - RASH [None]
